FAERS Safety Report 9457499 (Version 1)
Quarter: 2013Q3

REPORT INFORMATION
  Report Type: Spontaneous
  Country: US (occurrence: None)
  Receive Date: 20130812
  Receipt Date: 20130812
  Transmission Date: 20140515
  Serious: Yes (Disabling)
  Sender: FDA-Public Use
  Company Number: None

PATIENT
  Age: 81 Year
  Sex: Male
  Weight: 90.72 kg

DRUGS (1)
  1. CIPRO [Suspect]
     Indication: PROPHYLAXIS
     Route: 048
     Dates: start: 20130501, end: 20130510

REACTIONS (1)
  - Arthralgia [None]
